FAERS Safety Report 4579606-5 (Version None)
Quarter: 2005Q1

REPORT INFORMATION
  Report Type: 
  Country: None (occurrence: None)
  Receive Date: 20050210
  Receipt Date: 20050126
  Transmission Date: 20050727
  Serious: Yes (Death)
  Sender: FDA-Public Use
  Company Number: 2004AL000535

PATIENT
  Age: 26 Year
  Sex: Male
  Weight: 182.7996 kg

DRUGS (4)
  1. ALPRAZOLAM [Suspect]
     Dosage: PO
     Route: 048
  2. METHADONE HCL [Suspect]
     Dosage: PO
     Route: 048
  3. OLANZAPINE [Suspect]
     Dosage: PO
     Route: 048
  4. VENLAFAXINE HCL [Suspect]
     Dosage: PO
     Route: 048

REACTIONS (4)
  - CARDIO-RESPIRATORY ARREST [None]
  - DRUG ABUSER [None]
  - DRUG TOXICITY [None]
  - INTENTIONAL MISUSE [None]
